FAERS Safety Report 25657370 (Version 1)
Quarter: 2025Q3

REPORT INFORMATION
  Report Type: Report from Study
  Country: US (occurrence: US)
  Receive Date: 20250808
  Receipt Date: 20250808
  Transmission Date: 20251021
  Serious: Yes (Other)
  Sender: ABBVIE
  Company Number: US-ABBVIE-5793845

PATIENT
  Age: 78 Year
  Sex: Female

DRUGS (1)
  1. SKYRIZI [Suspect]
     Active Substance: RISANKIZUMAB-RZAA
     Indication: Psoriasis
     Route: 058
     Dates: start: 20240415

REACTIONS (11)
  - Gallbladder operation [Recovering/Resolving]
  - Cough [Recovering/Resolving]
  - Pharyngitis streptococcal [Recovering/Resolving]
  - Throat irritation [Recovering/Resolving]
  - Psoriasis [Recovered/Resolved]
  - Pyrexia [Recovering/Resolving]
  - Respiratory tract congestion [Recovering/Resolving]
  - Erythema [Not Recovered/Not Resolved]
  - Pain [Not Recovered/Not Resolved]
  - Burning sensation [Not Recovered/Not Resolved]
  - Psoriasis [Not Recovered/Not Resolved]

NARRATIVE: CASE EVENT DATE: 20240101
